FAERS Safety Report 22597559 (Version 1)
Quarter: 2023Q2

REPORT INFORMATION
  Report Type: Spontaneous
  Country: US (occurrence: US)
  Receive Date: 20230614
  Receipt Date: 20230614
  Transmission Date: 20230722
  Serious: No
  Sender: FDA-Public Use
  Company Number: US-ENDO PHARMACEUTICALS INC-2022-005991

PATIENT
  Sex: Female
  Weight: 68.9 kg

DRUGS (4)
  1. SUPPRELIN LA [Suspect]
     Active Substance: HISTRELIN ACETATE
     Indication: Precocious puberty
     Dosage: UNK UNKNOWN, UNKNOWN
     Route: 065
     Dates: start: 202102, end: 202209
  2. SUPPRELIN LA [Suspect]
     Active Substance: HISTRELIN ACETATE
     Indication: Precocious puberty
     Dosage: UNK UNKNOWN, UNKNOWN
     Route: 065
     Dates: start: 202102, end: 202209
  3. SUPPRELIN LA [Suspect]
     Active Substance: HISTRELIN ACETATE
     Dosage: UNK UNKNOWN, UNKNOWN
     Route: 065
     Dates: start: 201910
  4. SUPPRELIN LA [Suspect]
     Active Substance: HISTRELIN ACETATE
     Dosage: UNK UNKNOWN, UNKNOWN
     Route: 065
     Dates: start: 201910

REACTIONS (6)
  - Skin laxity [Unknown]
  - Fat tissue increased [Unknown]
  - Peripheral swelling [Not Recovered/Not Resolved]
  - Implant site hypoaesthesia [Not Recovered/Not Resolved]
  - Implant site paraesthesia [Not Recovered/Not Resolved]
  - Incorrect product administration duration [Unknown]

NARRATIVE: CASE EVENT DATE: 20210101
